FAERS Safety Report 12691781 (Version 1)
Quarter: 2016Q3

REPORT INFORMATION
  Report Type: Spontaneous
  Country: CA (occurrence: CA)
  Receive Date: 20160826
  Receipt Date: 20160826
  Transmission Date: 20161109
  Serious: Yes (Other)
  Sender: FDA-Public Use
  Company Number: CA-GILEAD-2016-0230175

PATIENT
  Age: 33 Year
  Sex: Female

DRUGS (1)
  1. CAYSTON [Suspect]
     Active Substance: AZTREONAM
     Indication: PRODUCT USED FOR UNKNOWN INDICATION
     Dosage: UNK
     Route: 065
     Dates: end: 20160809

REACTIONS (4)
  - Pulmonary haemorrhage [Unknown]
  - Maternal exposure during pregnancy [Unknown]
  - Haemoptysis [Unknown]
  - Cervix carcinoma [Unknown]
